FAERS Safety Report 8385145-6 (Version None)
Quarter: 2012Q2

REPORT INFORMATION
  Report Type: 
  Country: None (occurrence: None)
  Receive Date: 20120524
  Receipt Date: 20120510
  Transmission Date: 20120825
  Serious: No
  Sender: FDA-Public Use
  Company Number: US-UCBSA-057438

PATIENT
  Age: 50 Year
  Sex: Female
  Weight: 154 kg

DRUGS (10)
  1. OTC CALCIUM CITRATE-VITAMIN D3 [Concomitant]
     Dosage: 315 MG-200 UNIT TABLET-2 TABLET TWICE A DAY
     Route: 048
  2. SERTRALINE HYDROCHLORIDE [Concomitant]
     Dosage: 25 MG,2 TAB
     Route: 048
  3. PREDNISOLONE [Concomitant]
     Indication: CROHN'S DISEASE
     Dosage: 15 MG/5 ML SOLUTION ,1.5ML(S)ONCE A DAY OR AS DIRECTED(IS ON 40 MG TODAY THEN TAPER)
     Route: 048
     Dates: start: 20110401
  4. MERCAPTOPURINE [Concomitant]
     Indication: CROHN'S DISEASE
     Route: 048
     Dates: start: 20050401
  5. TRAMADOL HYDROCHLORIDE [Concomitant]
     Indication: PAIN
     Dosage: 1-2 TABLETS ,3 TIMES A DAY
     Route: 048
  6. EPINEPHRINE [Concomitant]
     Dosage: 0.3MG/0.3 ML,PEN INJECTOR-1
  7. MULTIVITAMIN(OTC) [Concomitant]
     Dosage: 1 TABLET TWICE A DAY
     Route: 048
  8. CIMZIA [Suspect]
     Indication: CROHN'S DISEASE
     Dosage: GOT 4 DOSAGE OF CIMZIA IN 2012
     Dates: start: 20120101
  9. AMLODIPINE BESYLATE [Concomitant]
     Route: 048
  10. ADALIMUMAB [Concomitant]

REACTIONS (1)
  - DRUG HYPERSENSITIVITY [None]
